FAERS Safety Report 15704454 (Version 1)
Quarter: 2018Q4

REPORT INFORMATION
  Report Type: Spontaneous
  Country: DK (occurrence: DK)
  Receive Date: 20181210
  Receipt Date: 20181210
  Transmission Date: 20190205
  Serious: Yes (Life-Threatening, Hospitalization)
  Sender: FDA-Public Use
  Company Number: DK-ROCHE-2225607

PATIENT
  Age: 69 Year
  Sex: Male

DRUGS (11)
  1. ALECENSA [Suspect]
     Active Substance: ALECTINIB HYDROCHLORIDE
     Indication: NON-SMALL CELL LUNG CANCER METASTATIC
     Route: 048
     Dates: start: 20180905, end: 20181121
  2. METOCLOPRAMIDE. [Concomitant]
     Active Substance: METOCLOPRAMIDE
     Indication: NAUSEA
     Route: 048
     Dates: start: 201810
  3. LAXOBERAL [Concomitant]
     Active Substance: SODIUM PICOSULFATE
     Indication: CONSTIPATION
     Route: 048
     Dates: start: 201809
  4. DULCOLAX (BISACODYL) [Concomitant]
     Active Substance: BISACODYL
     Indication: CONSTIPATION
     Route: 054
     Dates: start: 201809
  5. ORAMORPH [Concomitant]
     Active Substance: MORPHINE SULFATE
     Indication: COUGH
     Route: 048
  6. PINEX (DENMARK) [Concomitant]
     Indication: PAIN
     Route: 048
     Dates: start: 201808
  7. DUOVENT [Concomitant]
     Active Substance: FENOTEROL HYDROBROMIDE
     Indication: ASTHMA
     Route: 055
     Dates: start: 201808
  8. MORFIN (DENMARK) [Concomitant]
     Indication: PAIN
     Dosage: AS NEEDED
     Route: 048
     Dates: start: 201808
  9. MALFIN [Concomitant]
     Active Substance: MORPHINE SULFATE
     Indication: PAIN
     Route: 048
     Dates: start: 201808
  10. GANGIDEN [Concomitant]
     Indication: CONSTIPATION
     Route: 048
     Dates: start: 201809
  11. FRAGMIN [Concomitant]
     Active Substance: DALTEPARIN SODIUM
     Indication: THROMBOSIS PROPHYLAXIS
     Route: 058
     Dates: start: 201809

REACTIONS (8)
  - Dyspnoea [Unknown]
  - Lung infiltration [Unknown]
  - C-reactive protein increased [Recovering/Resolving]
  - Asthenia [Unknown]
  - Pyrexia [Unknown]
  - Respiratory rate increased [Unknown]
  - Pneumonitis [Unknown]
  - Body temperature fluctuation [Unknown]
